FAERS Safety Report 21997698 (Version 1)
Quarter: 2023Q1

REPORT INFORMATION
  Report Type: Spontaneous
  Country: PL (occurrence: PL)
  Receive Date: 20230216
  Receipt Date: 20230216
  Transmission Date: 20230417
  Serious: Yes (Other)
  Sender: FDA-Public Use
  Company Number: None

PATIENT
  Age: 73 Year
  Sex: Female
  Weight: 78 kg

DRUGS (2)
  1. FLUOROURACIL [Suspect]
     Active Substance: FLUOROURACIL
     Indication: Product used for unknown indication
     Dosage: UNIT DOSE : 2227.2 MG, THE DRUG HAS BEEN USED IN THE PAST, THEN NO ADVERSE REACTIONS
     Route: 065
     Dates: start: 20221207, end: 20221209
  2. IRINOTECAN [Suspect]
     Active Substance: IRINOTECAN
     Indication: Product used for unknown indication
     Dosage: UNIT DOSE : 334.08 MG, THE DRUG HAS BEEN USED IN THE PAST, THEN NO ADVERSE REACTIONS. EXP. 01.2025
     Dates: start: 20221207, end: 20221207

REACTIONS (2)
  - Neutropenia [Not Recovered/Not Resolved]
  - Hypokalaemia [Not Recovered/Not Resolved]

NARRATIVE: CASE EVENT DATE: 20221221
